FAERS Safety Report 9475672 (Version 1)
Quarter: 2013Q3

REPORT INFORMATION
  Report Type: Spontaneous
  Country: US (occurrence: None)
  Receive Date: 20130821
  Receipt Date: 20130821
  Transmission Date: 20140515
  Serious: Yes (Other)
  Sender: FDA-Public Use
  Company Number: ZYD-13-AE-227

PATIENT
  Sex: Male

DRUGS (2)
  1. DIVALPROEX [Suspect]
     Indication: CONVULSION
     Route: 048
  2. CLARITHROMYCIN [Suspect]
     Indication: UPPER RESPIRATORY TRACT INFECTION
     Route: 048
     Dates: start: 20130811, end: 20130812

REACTIONS (1)
  - Convulsion [None]
